FAERS Safety Report 8969453 (Version 1)
Quarter: 2012Q4

REPORT INFORMATION
  Report Type: 
  Country: IL (occurrence: IL)
  Receive Date: 20121218
  Receipt Date: 20121218
  Transmission Date: 20130627
  Serious: Yes (Hospitalization)
  Sender: FDA-Public Use
  Company Number: IL-AMGEN-ISRSP2012078945

PATIENT
  Age: 24 Year
  Sex: Male

DRUGS (3)
  1. NEULASTIM [Suspect]
     Indication: PROPHYLAXIS
     Dosage: UNK
     Route: 065
  2. DOXORUBICIN [Concomitant]
     Indication: BONE SARCOMA
     Dosage: UNK
     Route: 065
  3. CISPLATIN [Concomitant]
     Indication: BONE SARCOMA
     Dosage: UNK
     Route: 065

REACTIONS (1)
  - Febrile neutropenia [Unknown]
